FAERS Safety Report 8237021-7 (Version None)
Quarter: 2012Q1

REPORT INFORMATION
  Report Type: 
  Country: None (occurrence: None)
  Receive Date: 20120327
  Receipt Date: 20120322
  Transmission Date: 20120608
  Serious: Yes (Death, Other)
  Sender: FDA-Public Use
  Company Number: PHHY2012MX025609

PATIENT
  Sex: Female

DRUGS (1)
  1. EXFORGE [Suspect]
     Indication: HYPERTENSION
     Dosage: (160/5 MG), UNK

REACTIONS (3)
  - HAEMODIALYSIS COMPLICATION [None]
  - DEATH [None]
  - LUNG DISORDER [None]
